FAERS Safety Report 9902769 (Version 1)
Quarter: 2014Q1

REPORT INFORMATION
  Report Type: Spontaneous
  Country: FR (occurrence: FR)
  Receive Date: 20140217
  Receipt Date: 20140217
  Transmission Date: 20141002
  Serious: Yes (Hospitalization)
  Sender: FDA-Public Use
  Company Number: FR-GE HEALTHCARE MEDICAL DIAGNOSTICS-OMPQ-PR-1402S-0126

PATIENT
  Age: 77 Year
  Sex: Male

DRUGS (10)
  1. OMNIPAQUE [Suspect]
     Indication: PRODUCT USED FOR UNKNOWN INDICATION
     Route: 042
     Dates: start: 20130805, end: 20130805
  2. OMNIPAQUE [Suspect]
     Indication: DIAGNOSTIC PROCEDURE
     Route: 042
     Dates: start: 20130806, end: 20130806
  3. OMNIPAQUE [Suspect]
     Indication: THERAPEUTIC PROCEDURE
  4. COUMADIN [Concomitant]
  5. KARDEGIC [Concomitant]
  6. BISOPROLOL [Concomitant]
  7. RAMIPRIL [Concomitant]
  8. NICORANDIL [Concomitant]
  9. INEGY [Concomitant]
  10. NOVOMIX [Concomitant]

REACTIONS (1)
  - Renal failure acute [Recovered/Resolved]
